FAERS Safety Report 8563717 (Version 3)
Quarter: 2012Q4

REPORT INFORMATION
  Report Type: 
  Country: DE (occurrence: DE)
  Receive Date: 20120515
  Receipt Date: 20120907
  Transmission Date: 20130627
  Serious: Yes (Life-Threatening, Hospitalization, Disabling, Other)
  Sender: FDA-Public Use
  Company Number: DE-ELI_LILLY_AND_COMPANY-DE201205004040

PATIENT
  Age: 59 Year
  Sex: Male
  Weight: 102 kg

DRUGS (1)
  1. BYDUREON [Suspect]
     Indication: DIABETES MELLITUS
     Dosage: 2 mg, unknown

REACTIONS (15)
  - Cardiac arrest [Recovered/Resolved with Sequelae]
  - Cardiogenic shock [Recovered/Resolved with Sequelae]
  - Depressed level of consciousness [Not Recovered/Not Resolved]
  - Acute myocardial infarction [Recovered/Resolved with Sequelae]
  - Brain injury [Not Recovered/Not Resolved]
  - Gastrointestinal haemorrhage [Unknown]
  - Shock haemorrhagic [Unknown]
  - Myoclonic epilepsy [Unknown]
  - Renal failure acute [Unknown]
  - Bronchopneumonia [Unknown]
  - Apallic syndrome [Not Recovered/Not Resolved]
  - Quadriplegia [Unknown]
  - Urinary incontinence [Unknown]
  - Faecal incontinence [Unknown]
  - Blood glucose increased [Unknown]
